FAERS Safety Report 13303506 (Version 2)
Quarter: 2017Q2

REPORT INFORMATION
  Report Type: Spontaneous
  Country: US (occurrence: US)
  Receive Date: 20170307
  Receipt Date: 20170609
  Transmission Date: 20170830
  Serious: Yes (Hospitalization, Other)
  Sender: FDA-Public Use
  Company Number: US-AMGEN-USASP2017012668

PATIENT
  Age: 71 Year
  Sex: Male
  Weight: 101.59 kg

DRUGS (1)
  1. BLINCYTO [Suspect]
     Active Substance: BLINATUMOMAB
     Indication: ACUTE LYMPHOCYTIC LEUKAEMIA
     Dosage: 28 MUG, QD Q48H
     Route: 042
     Dates: start: 20160505, end: 20161121

REACTIONS (1)
  - Catheter site cellulitis [Recovering/Resolving]

NARRATIVE: CASE EVENT DATE: 20160801
